FAERS Safety Report 4766498-4 (Version None)
Quarter: 2005Q3

REPORT INFORMATION
  Report Type: 
  Country: None (occurrence: None)
  Receive Date: 20050909
  Receipt Date: 20050902
  Transmission Date: 20060218
  Serious: No
  Sender: FDA-Public Use
  Company Number: LNL-100516-NL

PATIENT
  Age: 44 Year
  Sex: Female

DRUGS (6)
  1. ROCURONIUM BROMIDE [Suspect]
     Indication: MUSCLE RELAXANT THERAPY
     Dosage: 70 MG INTRAVENOUS (NOS)
     Route: 042
     Dates: start: 19990831, end: 19980831
  2. ROCURONIUM BROMIDE [Suspect]
     Indication: SENSORY DISTURBANCE
     Dosage: 70 MG INTRAVENOUS (NOS)
     Route: 042
     Dates: start: 19990831, end: 19980831
  3. FENTANYL CITRATE [Suspect]
     Indication: SENSORY DISTURBANCE
     Dosage: DF
     Dates: start: 19990831, end: 19990831
  4. MIDAZOLAM [Suspect]
     Dosage: DF
     Dates: start: 19990831, end: 19990831
  5. PROPOFOL [Suspect]
     Dosage: DF
     Dates: start: 19990831, end: 19990831
  6. CEFAMANDOLE NAFATE [Suspect]
     Dosage: DF
     Dates: start: 19990831, end: 19990831

REACTIONS (7)
  - ANAPHYLACTIC REACTION [None]
  - BRONCHOSPASM [None]
  - HYPERTENSION [None]
  - HYPOXIA [None]
  - PERIORBITAL OEDEMA [None]
  - RASH ERYTHEMATOUS [None]
  - RASH MACULAR [None]
